FAERS Safety Report 15690920 (Version 1)
Quarter: 2018Q4

REPORT INFORMATION
  Report Type: Spontaneous
  Country: US (occurrence: US)
  Receive Date: 20181205
  Receipt Date: 20181205
  Transmission Date: 20190205
  Serious: No
  Sender: FDA-Public Use
  Company Number: US-SA-2018SA328764

PATIENT
  Age: 13 Year
  Sex: Male

DRUGS (9)
  1. CLOBETASOL PROPIONATE. [Concomitant]
     Active Substance: CLOBETASOL PROPIONATE
  2. TRIAMCINOLONE ACETONIDE. [Concomitant]
     Active Substance: TRIAMCINOLONE ACETONIDE
  3. MULTIVITAMIN [VITAMINS NOS] [Concomitant]
  4. MONTELUKAST SODIUM. [Concomitant]
     Active Substance: MONTELUKAST SODIUM
     Route: 048
  5. TACROLIMUS. [Concomitant]
     Active Substance: TACROLIMUS
     Route: 065
  6. EUCRISA [Concomitant]
     Active Substance: CRISABOROLE
  7. DUPIXENT [Suspect]
     Active Substance: DUPILUMAB
     Indication: DERMATITIS ALLERGIC
     Dosage: 300 MG, QOW
     Route: 058
     Dates: start: 20180312, end: 201811
  8. MUPIROCIN. [Concomitant]
     Active Substance: MUPIROCIN
     Route: 065
  9. ZYRTEC [Concomitant]
     Active Substance: CETIRIZINE HYDROCHLORIDE
     Route: 065

REACTIONS (2)
  - Product dose omission [Unknown]
  - Product use issue [Unknown]

NARRATIVE: CASE EVENT DATE: 20180312
